FAERS Safety Report 4390751-X (Version None)
Quarter: 2004Q3

REPORT INFORMATION
  Report Type: 
  Country: None (occurrence: None)
  Receive Date: 20040706
  Receipt Date: 20040706
  Transmission Date: 20050211
  Serious: Yes (Other)
  Sender: FDA-Public Use
  Company Number: None

PATIENT
  Sex: Male

DRUGS (2)
  1. FOSAMAX [Suspect]
     Dosage: Q WEEK
  2. ZITHROMAX [Suspect]
     Indication: INFECTION
     Dosage: QD

REACTIONS (1)
  - MEDICATION ERROR [None]
